FAERS Safety Report 16887076 (Version 1)
Quarter: 2019Q4

REPORT INFORMATION
  Report Type: Spontaneous
  Country: PR (occurrence: US)
  Receive Date: 20191004
  Receipt Date: 20191004
  Transmission Date: 20200122
  Serious: No
  Sender: FDA-Public Use
  Company Number: PR-ELI_LILLY_AND_COMPANY-PR201910002743

PATIENT
  Sex: Female

DRUGS (1)
  1. EMGALITY [Suspect]
     Active Substance: GALCANEZUMAB-GNLM
     Indication: MIGRAINE PROPHYLAXIS
     Dosage: 120 MG, UNKNOWN
     Route: 065
     Dates: start: 201904

REACTIONS (2)
  - Normocytic anaemia [Unknown]
  - White blood cell analysis abnormal [Unknown]
